FAERS Safety Report 8062171-8 (Version None)
Quarter: 2012Q1

REPORT INFORMATION
  Report Type: 
  Country: None (occurrence: None)
  Receive Date: 20120118
  Receipt Date: 20120104
  Transmission Date: 20120608
  Serious: Yes (Other)
  Sender: FDA-Public Use
  Company Number: JPI-P-019142

PATIENT
  Age: 69 Year
  Sex: Male

DRUGS (3)
  1. XYREM [Suspect]
     Indication: CATAPLEXY
     Dosage: 3.5 GM (1.75 GM, 2 IN 1 D), ORAL; (TITRATING DOSE), ORAL; 9 GM (4.5 GM, 2 IN 1 D), ORAL
     Route: 048
     Dates: start: 20111123
  2. XYREM [Suspect]
     Indication: CATAPLEXY
     Dosage: 3.5 GM (1.75 GM, 2 IN 1 D), ORAL; (TITRATING DOSE), ORAL; 9 GM (4.5 GM, 2 IN 1 D), ORAL
     Route: 048
     Dates: start: 20110818
  3. XYREM [Suspect]
     Indication: CATAPLEXY
     Dosage: 3.5 GM (1.75 GM, 2 IN 1 D), ORAL; (TITRATING DOSE), ORAL; 9 GM (4.5 GM, 2 IN 1 D), ORAL
     Route: 048
     Dates: start: 20110101, end: 20110101

REACTIONS (1)
  - ARTHROPATHY [None]
